FAERS Safety Report 9662179 (Version 2)
Quarter: 2014Q1

REPORT INFORMATION
  Report Type: Spontaneous
  Country: US (occurrence: US)
  Receive Date: 20131031
  Receipt Date: 20140227
  Transmission Date: 20141002
  Serious: Yes (Other)
  Sender: FDA-Public Use
  Company Number: PHHY2013US118929

PATIENT
  Age: 23 Year
  Sex: Male

DRUGS (16)
  1. FLUOXETINE [Suspect]
     Indication: POST-TRAUMATIC STRESS DISORDER
  2. CITALOPRAM [Suspect]
     Indication: POST-TRAUMATIC STRESS DISORDER
  3. ESCITALOPRAM [Suspect]
     Indication: POST-TRAUMATIC STRESS DISORDER
  4. SERTRALINE [Suspect]
     Indication: POST-TRAUMATIC STRESS DISORDER
  5. BUPROPION [Suspect]
     Indication: POST-TRAUMATIC STRESS DISORDER
  6. OLANZAPINE [Suspect]
     Indication: POST-TRAUMATIC STRESS DISORDER
  7. AMITRIPTYLINE [Suspect]
     Indication: POST-TRAUMATIC STRESS DISORDER
  8. VALPROIC ACID [Suspect]
     Indication: POST-TRAUMATIC STRESS DISORDER
  9. VENLAFAXINE [Suspect]
     Indication: POST-TRAUMATIC STRESS DISORDER
  10. RISPERIDONE [Suspect]
     Indication: POST-TRAUMATIC STRESS DISORDER
  11. ZOLPIDEM [Suspect]
     Indication: POOR QUALITY SLEEP
  12. QUETIAPINE [Suspect]
     Indication: POOR QUALITY SLEEP
  13. DIPHENHYDRAMINE [Suspect]
     Indication: POOR QUALITY SLEEP
  14. TRAZODONE [Suspect]
     Indication: POOR QUALITY SLEEP
  15. PRAZOSIN [Suspect]
     Indication: POOR QUALITY SLEEP
  16. ESZOPICLONE [Suspect]
     Indication: POOR QUALITY SLEEP

REACTIONS (5)
  - Suicidal ideation [Unknown]
  - Drug intolerance [Unknown]
  - Therapeutic response decreased [Unknown]
  - Drug ineffective [Unknown]
  - Exposure via father [Unknown]
